FAERS Safety Report 6849597-2 (Version None)
Quarter: 2010Q3

REPORT INFORMATION
  Report Type: 
  Country: None (occurrence: None)
  Receive Date: 20100716
  Receipt Date: 20071002
  Transmission Date: 20110219
  Serious: No
  Sender: FDA-Public Use
  Company Number: US-PFIZER INC-2007084388

PATIENT
  Sex: Male
  Weight: 86.4 kg

DRUGS (2)
  1. CHANTIX [Suspect]
     Indication: SMOKING CESSATION THERAPY
     Dates: start: 20070918
  2. METOPROLOL [Concomitant]
     Indication: HYPERTENSION

REACTIONS (3)
  - INSOMNIA [None]
  - PRURITUS [None]
  - RESTLESSNESS [None]
